FAERS Safety Report 6363689-6 (Version None)
Quarter: 2009Q3

REPORT INFORMATION
  Report Type: 
  Country: None (occurrence: None)
  Receive Date: 20090919
  Receipt Date: 20090707
  Transmission Date: 20100115
  Serious: No
  Sender: FDA-Public Use
  Company Number: US-ABBOTT-09P-163-0583824-00

PATIENT
  Sex: Female

DRUGS (1)
  1. HUMIRA [Suspect]
     Indication: RHEUMATOID ARTHRITIS
     Dates: start: 20090612, end: 20090707

REACTIONS (4)
  - BLISTER [None]
  - PAIN [None]
  - WOUND HAEMORRHAGE [None]
  - WOUND SECRETION [None]
